FAERS Safety Report 22943185 (Version 2)
Quarter: 2023Q4

REPORT INFORMATION
  Report Type: Spontaneous
  Country: US (occurrence: US)
  Receive Date: 20230914
  Receipt Date: 20231218
  Transmission Date: 20240110
  Serious: Yes (Hospitalization, Other)
  Sender: FDA-Public Use
  Company Number: US-JNJFOC-20230914417

PATIENT
  Sex: Female

DRUGS (4)
  1. REMICADE [Suspect]
     Active Substance: INFLIXIMAB
     Indication: Crohn^s disease
     Route: 041
     Dates: start: 200302, end: 2012
  2. REMICADE [Suspect]
     Active Substance: INFLIXIMAB
     Route: 041
  3. INFLECTRA [Suspect]
     Active Substance: INFLIXIMAB-DYYB
     Indication: Crohn^s disease
     Route: 065
     Dates: start: 2015, end: 2016
  4. PREDNISONE [Concomitant]
     Active Substance: PREDNISONE
     Indication: Product used for unknown indication
     Route: 065

REACTIONS (5)
  - Surgery [Unknown]
  - Crohn^s disease [Unknown]
  - Rheumatoid arthritis [Unknown]
  - Drug resistance [Unknown]
  - Drug ineffective [Unknown]
